FAERS Safety Report 25031229 (Version 1)
Quarter: 2025Q1

REPORT INFORMATION
  Report Type: Spontaneous
  Country: US (occurrence: None)
  Receive Date: 20250228
  Receipt Date: 20250228
  Transmission Date: 20250409
  Serious: Yes (Hospitalization, Other)
  Sender: FDA-CTU
  Company Number: None

PATIENT
  Age: 60 Year
  Sex: Female

DRUGS (1)
  1. LENALIDOMIDE [Suspect]
     Active Substance: LENALIDOMIDE
     Indication: Chronic lymphocytic leukaemia
     Dosage: 10MG QD ORAL ?
     Route: 048
     Dates: start: 20250102, end: 20250221

REACTIONS (2)
  - Tumour lysis syndrome [None]
  - Therapy cessation [None]

NARRATIVE: CASE EVENT DATE: 20250124
